FAERS Safety Report 26023662 (Version 1)
Quarter: 2025Q4

REPORT INFORMATION
  Report Type: Spontaneous
  Country: US (occurrence: US)
  Receive Date: 20251111
  Receipt Date: 20251111
  Transmission Date: 20260118
  Serious: No
  Sender: SANOFI AVENTIS
  Company Number: US-SA-2025SA330773

PATIENT
  Sex: Male
  Weight: 88.64 kg

DRUGS (3)
  1. DUPIXENT [Suspect]
     Active Substance: DUPILUMAB
     Indication: Dermatitis atopic
     Dosage: 300 MG, QOW
     Route: 058
  2. TELMISARTAN [Concomitant]
     Active Substance: TELMISARTAN
  3. AMLODIPINE BESYLATE [Concomitant]
     Active Substance: AMLODIPINE BESYLATE

REACTIONS (6)
  - Rash macular [Recovered/Resolved]
  - Dry skin [Recovered/Resolved]
  - Photosensitivity reaction [Recovered/Resolved]
  - Erythema [Recovered/Resolved]
  - Product dose omission issue [Recovered/Resolved]
  - Dermatitis atopic [Recovered/Resolved]
